FAERS Safety Report 5231138-7 (Version None)
Quarter: 2007Q1

REPORT INFORMATION
  Report Type: 
  Country: None (occurrence: None)
  Receive Date: 20070206
  Receipt Date: 20070131
  Transmission Date: 20070707
  Serious: Yes (Death, Hospitalization)
  Sender: FDA-Public Use
  Company Number: JP-MERCK-0701USA04497

PATIENT
  Age: 69 Year
  Sex: Male

DRUGS (4)
  1. PEPCID RPD [Suspect]
     Indication: DUODENAL ULCER
     Route: 048
     Dates: start: 20061107, end: 20061125
  2. OMEPRAL [Concomitant]
     Route: 048
  3. SELBEX [Concomitant]
     Route: 048
     Dates: start: 20061120
  4. [THERAPY UNSPECIFIED] [Concomitant]
     Route: 042
     Dates: start: 20061120

REACTIONS (1)
  - BILE DUCT CANCER [None]
